FAERS Safety Report 13521571 (Version 1)
Quarter: 2017Q2

REPORT INFORMATION
  Report Type: Spontaneous
  Country: US (occurrence: US)
  Receive Date: 20170506
  Receipt Date: 20170506
  Transmission Date: 20170830
  Serious: No
  Sender: FDA-Public Use
  Company Number: None

PATIENT
  Age: 54 Year
  Sex: Male
  Weight: 118.3 kg

DRUGS (5)
  1. ACYCLOVIR. [Concomitant]
     Active Substance: ACYCLOVIR
  2. CIALIS [Suspect]
     Active Substance: TADALAFIL
     Indication: ERECTILE DYSFUNCTION
     Dosage: ?          QUANTITY:1 TABLET(S);?
     Route: 048
     Dates: start: 20170426, end: 20170505
  3. BABY ASPIRIN [Concomitant]
     Active Substance: ASPIRIN
  4. RANTADINE [Concomitant]
  5. CIALIS [Suspect]
     Active Substance: TADALAFIL
     Indication: BLOOD TESTOSTERONE DECREASED
     Dosage: ?          QUANTITY:1 TABLET(S);?
     Route: 048
     Dates: start: 20170426, end: 20170505

REACTIONS (4)
  - Pain in extremity [None]
  - Inappropriate schedule of drug administration [None]
  - Wrong technique in product usage process [None]
  - Myalgia [None]

NARRATIVE: CASE EVENT DATE: 20170430
